FAERS Safety Report 21226762 (Version 2)
Quarter: 2022Q3

REPORT INFORMATION
  Report Type: Report from Study
  Country: US (occurrence: None)
  Receive Date: 20220818
  Receipt Date: 20220823
  Transmission Date: 20221026
  Serious: Yes (Hospitalization)
  Sender: FDA-Public Use
  Company Number: US-ROCHE-3161927

PATIENT
  Age: 70 Year
  Sex: Male
  Weight: 77.9 kg

DRUGS (17)
  1. NINTEDANIB [Suspect]
     Active Substance: NINTEDANIB
     Indication: Idiopathic pulmonary fibrosis
     Route: 048
     Dates: start: 20191105
  2. ROSUVASTATIN [Concomitant]
     Active Substance: ROSUVASTATIN
     Indication: Hyperlipidaemia
     Route: 048
     Dates: start: 2010
  3. OMEPRAZOLE [Concomitant]
     Active Substance: OMEPRAZOLE
     Indication: Gastrooesophageal reflux disease
     Route: 048
     Dates: start: 2019
  4. VITAMINS [Concomitant]
     Active Substance: VITAMINS
     Route: 048
     Dates: start: 2016
  5. VENTOLIN [Concomitant]
     Active Substance: ALBUTEROL SULFATE
     Indication: Idiopathic pulmonary fibrosis
     Dosage: 1 PUFF
     Route: 055
     Dates: start: 2019
  6. ZOLOFT [Concomitant]
     Active Substance: SERTRALINE HYDROCHLORIDE
     Indication: Anxiety
     Route: 048
     Dates: start: 2001
  7. ADVAIR HFA [Concomitant]
     Active Substance: FLUTICASONE PROPIONATE\SALMETEROL XINAFOATE
     Indication: Idiopathic pulmonary fibrosis
     Dosage: 1 PUFF
     Route: 055
     Dates: start: 202105
  8. MONTELUKAST [Concomitant]
     Active Substance: MONTELUKAST SODIUM
     Indication: Idiopathic pulmonary fibrosis
     Route: 048
     Dates: start: 2019
  9. VITAMIN D3 [Concomitant]
     Active Substance: CHOLECALCIFEROL
     Route: 048
     Dates: start: 2020
  10. DEVICE [Concomitant]
     Active Substance: DEVICE
     Indication: Obstructive sleep apnoea syndrome
     Dosage: 3 OTHER
     Route: 055
     Dates: start: 2015
  11. LOPERAMIDE [Concomitant]
     Active Substance: LOPERAMIDE
     Indication: Diarrhoea
     Route: 048
     Dates: start: 2019
  12. OXYGEN [Concomitant]
     Active Substance: OXYGEN
     Indication: Idiopathic pulmonary fibrosis
     Dosage: 2 INHALATION
     Route: 055
     Dates: start: 2019
  13. OXYGEN [Concomitant]
     Active Substance: OXYGEN
     Dosage: 6 INHALATION
     Route: 055
     Dates: start: 2019
  14. TYLENOL [Concomitant]
     Active Substance: ACETAMINOPHEN
     Indication: Arthritis
     Route: 048
     Dates: start: 2020
  15. TYLENOL [Concomitant]
     Active Substance: ACETAMINOPHEN
     Indication: Headache
  16. FLONASE [Concomitant]
     Active Substance: FLUTICASONE PROPIONATE
     Indication: Cough
     Dosage: 1 SPRAY
     Route: 045
     Dates: start: 20220615
  17. PIRFENIDONE [Concomitant]
     Active Substance: PIRFENIDONE
     Route: 048
     Dates: start: 201805

REACTIONS (1)
  - Lung transplant [Recovering/Resolving]

NARRATIVE: CASE EVENT DATE: 20220810
